FAERS Safety Report 25233055 (Version 1)
Quarter: 2025Q2

REPORT INFORMATION
  Report Type: Spontaneous
  Country: PK (occurrence: PK)
  Receive Date: 20250424
  Receipt Date: 20250424
  Transmission Date: 20250716
  Serious: Yes (Hospitalization, Other)
  Sender: RK PHARMA
  Company Number: PK-RK PHARMA, INC-20250400049

PATIENT

DRUGS (1)
  1. DICLOFENAC POTASSIUM [Suspect]
     Active Substance: DICLOFENAC POTASSIUM
     Indication: Musculoskeletal pain
     Route: 030

REACTIONS (2)
  - Gas gangrene [Recovering/Resolving]
  - Clostridial infection [Recovering/Resolving]
